FAERS Safety Report 5019644-1 (Version None)
Quarter: 2006Q2

REPORT INFORMATION
  Report Type: 
  Country: None (occurrence: None)
  Receive Date: 20060601
  Receipt Date: 20060519
  Transmission Date: 20061013
  Serious: Yes (Hospitalization, Other)
  Sender: FDA-Public Use
  Company Number: 2006066220

PATIENT
  Age: 69 Year
  Sex: Female

DRUGS (4)
  1. DETROL LA [Suspect]
     Indication: URINARY INCONTINENCE
     Dosage: 4 MG (4 MG, 1 IN 1 D), ORAL
     Route: 048
     Dates: start: 20050601
  2. FOSAMAX [Concomitant]
  3. ALLOPURINOL [Concomitant]
  4. OSCAL (CALCIUM CARBONATE) [Concomitant]

REACTIONS (5)
  - BLADDER CANCER [None]
  - BLOOD CHOLESTEROL INCREASED [None]
  - FLANK PAIN [None]
  - THERAPY NON-RESPONDER [None]
  - URETERIC OBSTRUCTION [None]
